FAERS Safety Report 9454039 (Version 1)
Quarter: 2013Q3

REPORT INFORMATION
  Report Type: Spontaneous
  Country: US (occurrence: US)
  Receive Date: 20130812
  Receipt Date: 20130812
  Transmission Date: 20140515
  Serious: No
  Sender: FDA-Public Use
  Company Number: US-BAYER-2013-097001

PATIENT
  Age: 65 Year
  Sex: Female

DRUGS (1)
  1. GADAVIST [Suspect]
     Dosage: 10 ML, ONCE
     Route: 042

REACTIONS (3)
  - Cough [None]
  - Dry throat [None]
  - Wheezing [None]
